FAERS Safety Report 20663199 (Version 1)
Quarter: 2022Q2

REPORT INFORMATION
  Report Type: Spontaneous
  Country: US (occurrence: US)
  Receive Date: 20220401
  Receipt Date: 20220401
  Transmission Date: 20220720
  Serious: No
  Sender: FDA-Public Use
  Company Number: US-GW PHARMA-202203USGW01568

PATIENT
  Age: 6 Year
  Sex: Female
  Weight: 19.955 kg

DRUGS (2)
  1. EPIDIOLEX [Suspect]
     Active Substance: CANNABIDIOL
     Indication: Epilepsy
     Dosage: 420 MG, FREQUENCY NOT REPORTED
     Route: 048
     Dates: start: 201904
  2. EPIDIOLEX [Suspect]
     Active Substance: CANNABIDIOL
     Indication: Epilepsy
     Dosage: 210 MG, FREQUENCY NOT REPORTED
     Route: 048
     Dates: start: 20210910

REACTIONS (2)
  - Nasopharyngitis [Unknown]
  - Emergency care [Unknown]

NARRATIVE: CASE EVENT DATE: 20220201
